FAERS Safety Report 10527959 (Version 12)
Quarter: 2021Q4

REPORT INFORMATION
  Report Type: Report from Study
  Country: GB (occurrence: GB)
  Receive Date: 20141020
  Receipt Date: 20211122
  Transmission Date: 20220303
  Serious: Yes (Hospitalization, Other)
  Sender: FDA-Public Use
  Company Number: GB-ROCHE-1198165

PATIENT
  Age: 65 Year
  Sex: Male
  Weight: 94 kg

DRUGS (28)
  1. EPIRUBICIN [Suspect]
     Active Substance: EPIRUBICIN
     Indication: Gastric cancer
     Dosage: 95 MILLIGRAM (DATE OF MOST RECENT ADMINISTRATION: 06-MAR-2012)
     Route: 042
     Dates: start: 20120124, end: 20120306
  2. EPIRUBICIN [Suspect]
     Active Substance: EPIRUBICIN
     Dosage: 95 MILLIGRAM (DATE OF MOST RECENT ADMINISTRATION: 06-MAR-2012)
     Route: 042
     Dates: start: 20120124
  3. EPIRUBICIN [Suspect]
     Active Substance: EPIRUBICIN
     Dosage: UNK
     Route: 042
     Dates: start: 20120124, end: 20120306
  4. ONDANSETRON [Suspect]
     Active Substance: ONDANSETRON
     Indication: Gastric cancer
     Dosage: 113 GRAM (DATE OF LAST DOSE: 09 MAR 2012)
     Route: 048
     Dates: start: 20120124, end: 20120309
  5. ONDANSETRON [Suspect]
     Active Substance: ONDANSETRON
     Dosage: UNK
     Route: 048
  6. SIMVASTATIN [Suspect]
     Active Substance: SIMVASTATIN
     Indication: Product used for unknown indication
     Dosage: 743 MG, UNK DATE OF MOST RECENT ADMINISTRATION: 06/MAR/2012
     Dates: start: 20120124
  7. EMEND [Suspect]
     Active Substance: APREPITANT
     Indication: Gastric cancer
     Dosage: 125 MILLIGRAM, QD (DATE OF LAST DOSE: 06-MAR-2012 )
     Route: 048
     Dates: start: 20120124
  8. EMEND [Suspect]
     Active Substance: APREPITANT
     Dosage: UNK (DATE OF LAST DOSE: 06-MAR-2012)
     Route: 048
     Dates: start: 20120124, end: 20120306
  9. EMEND [Suspect]
     Active Substance: APREPITANT
     Dosage: 113 MILLIGRAM, DATE OF LAST DOSE: 06-MAR-2012
     Route: 048
     Dates: start: 20120124
  10. EMEND [Suspect]
     Active Substance: APREPITANT
     Dosage: UNK
     Route: 048
  11. CISPLATIN [Suspect]
     Active Substance: CISPLATIN
     Indication: Gastric cancer
     Dosage: 113 MILLIGRAM (DATE OF MOST RECENT ADMINISTRATION: 06-MAR-2012)
     Route: 042
     Dates: start: 20120124
  12. CISPLATIN [Suspect]
     Active Substance: CISPLATIN
     Dosage: 113 MILLIGRAM
     Route: 042
     Dates: start: 20120122
  13. DEXAMETHASONE [Suspect]
     Active Substance: DEXAMETHASONE
     Indication: Gastric cancer
     Dosage: UNK (DATE OF LAST DOSE: 09-MAR-2012
     Route: 048
     Dates: start: 20120124, end: 20120309
  14. DEXAMETHASONE [Suspect]
     Active Substance: DEXAMETHASONE
     Dosage: UNK
     Dates: start: 20120124
  15. AVASTIN [Suspect]
     Active Substance: BEVACIZUMAB
     Indication: Gastric cancer
     Dosage: 743 MILLIGRAM (DATE OF MOST RECENT ADMINISTRATION: 06-MAR-2012)
     Route: 042
     Dates: start: 20120124, end: 20120306
  16. AVASTIN [Suspect]
     Active Substance: BEVACIZUMAB
     Dosage: UNK
     Route: 065
  17. AVASTIN [Suspect]
     Active Substance: BEVACIZUMAB
     Dosage: 113 MILLIGRAM (ONGOING)
     Route: 042
     Dates: start: 20120124, end: 20120306
  18. AVASTIN [Suspect]
     Active Substance: BEVACIZUMAB
     Dosage: 113 MILLIGRAM
     Route: 042
  19. AVASTIN [Suspect]
     Active Substance: BEVACIZUMAB
     Dosage: 743 MILLIGRAM
     Route: 042
  20. FUROSEMIDE [Suspect]
     Active Substance: FUROSEMIDE
     Indication: Gastric cancer
     Dosage: UNK (DATE OF LAST DOSE: 06-MAR-2012)
     Route: 048
     Dates: start: 20120124, end: 20120306
  21. FUROSEMIDE [Suspect]
     Active Substance: FUROSEMIDE
     Dosage: UNK
  22. XELODA [Suspect]
     Active Substance: CAPECITABINE
     Indication: Gastric cancer
     Dosage: 2500 MILLIGRAM, QD (DATE OF MOST RECENT ADMINISTRATION: 27-MAR-2012)
     Route: 048
     Dates: start: 20120124, end: 20120327
  23. XELODA [Suspect]
     Active Substance: CAPECITABINE
     Dosage: UNK (DATE OF MOST RECENT ADMINISTRATION: 27-MAR-2012)
     Route: 048
     Dates: start: 20120124, end: 20120327
  24. APREPITANT [Suspect]
     Active Substance: APREPITANT
     Indication: Product used for unknown indication
     Dosage: 113 MILLIGRAM, DATE OF LAST DOSE: 06/MAR/2012
     Route: 048
     Dates: start: 20120124, end: 20120306
  25. APREPITANT [Suspect]
     Active Substance: APREPITANT
     Dosage: 113 MILLIGRAM
  26. CAPECITABINE [Suspect]
     Active Substance: CAPECITABINE
     Indication: Gastric cancer
     Dosage: UNK
     Route: 048
     Dates: start: 20120124
  27. LISINOPRIL [Concomitant]
     Active Substance: LISINOPRIL
     Indication: Product used for unknown indication
     Dosage: 5 MILLIGRAM
     Route: 065
     Dates: start: 200705
  28. SIMVASTATIN [Concomitant]
     Active Substance: SIMVASTATIN
     Indication: Product used for unknown indication
     Dosage: 80 MILLIGRAM
     Route: 048
     Dates: start: 200503

REACTIONS (4)
  - Abdominal sepsis [Recovered/Resolved]
  - Diarrhoea [Recovered/Resolved]
  - Vomiting [Recovered/Resolved]
  - Febrile neutropenia [Recovered/Resolved]

NARRATIVE: CASE EVENT DATE: 20120313
